FAERS Safety Report 13713261 (Version 2)
Quarter: 2017Q3

REPORT INFORMATION
  Report Type: Spontaneous
  Country: US (occurrence: US)
  Receive Date: 20170704
  Receipt Date: 20170919
  Transmission Date: 20171127
  Serious: Yes (Other)
  Sender: FDA-Public Use
  Company Number: US-SUN PHARMACEUTICAL INDUSTRIES LTD-2017US-144486

PATIENT
  Age: 45 Year
  Sex: Female

DRUGS (1)
  1. DOXORUBICIN [Suspect]
     Active Substance: DOXORUBICIN
     Indication: OVARIAN CANCER STAGE III
     Dosage: 40 MG/M2, 115 CYCLES
     Route: 065

REACTIONS (3)
  - Pericardial effusion [Recovered/Resolved]
  - Lethargy [Unknown]
  - Oedema peripheral [Unknown]
